FAERS Safety Report 25161059 (Version 1)
Quarter: 2025Q2

REPORT INFORMATION
  Report Type: Spontaneous
  Country: US (occurrence: None)
  Receive Date: 20250403
  Receipt Date: 20250403
  Transmission Date: 20250717
  Serious: Yes (Other)
  Sender: FDA-CTU
  Company Number: None

PATIENT
  Age: 27 Year
  Sex: Female
  Weight: 54 kg

DRUGS (1)
  1. ERRIN [Suspect]
     Active Substance: NORETHINDRONE
     Indication: Oral contraception
     Dates: start: 20250101

REACTIONS (2)
  - Pregnancy on oral contraceptive [None]
  - Drug ineffective [None]

NARRATIVE: CASE EVENT DATE: 20250403
